FAERS Safety Report 7532977-X (Version None)
Quarter: 2011Q2

REPORT INFORMATION
  Report Type: 
  Country: None (occurrence: None)
  Receive Date: 20110608
  Receipt Date: 20110525
  Transmission Date: 20111010
  Serious: Yes (Other)
  Sender: FDA-Public Use
  Company Number: US-JNJFOC-20110404771

PATIENT
  Age: 17 Year
  Sex: Male

DRUGS (6)
  1. AZATHIOPRINE [Concomitant]
     Indication: COLITIS ULCERATIVE
     Route: 065
     Dates: end: 20110301
  2. REMICADE [Suspect]
     Indication: CROHN'S DISEASE
     Dosage: 500MG
     Route: 042
     Dates: start: 20110406
  3. REMICADE [Suspect]
     Indication: COLITIS ULCERATIVE
     Dosage: 500MG
     Route: 042
     Dates: start: 20110406
  4. FOLIC ACID [Concomitant]
     Route: 065
  5. PREDNISONE [Concomitant]
     Indication: COLITIS ULCERATIVE
     Route: 065
  6. SULFASALAZINE [Concomitant]
     Indication: COLITIS ULCERATIVE
     Route: 065

REACTIONS (7)
  - PAIN IN EXTREMITY [None]
  - CHEST DISCOMFORT [None]
  - PARAESTHESIA [None]
  - HYPOAESTHESIA [None]
  - BACK PAIN [None]
  - PNEUMONIA [None]
  - ASTHENIA [None]
